FAERS Safety Report 9118731 (Version 2)
Quarter: 2013Q2

REPORT INFORMATION
  Report Type: Spontaneous
  Country: US (occurrence: US)
  Receive Date: 20130226
  Receipt Date: 20130429
  Transmission Date: 20140414
  Serious: Yes (Other)
  Sender: FDA-Public Use
  Company Number: US-PFIZER INC-2013069125

PATIENT
  Sex: Female

DRUGS (2)
  1. EFFEXOR XR [Suspect]
     Indication: MAJOR DEPRESSION
     Dosage: 225 MG, 1X/DAY
     Route: 048
     Dates: start: 2002
  2. ALPRAZOLAM [Concomitant]
     Dosage: 1 MG, 4X/DAY

REACTIONS (5)
  - Suicidal behaviour [Unknown]
  - Crying [Unknown]
  - Frustration [Unknown]
  - Anger [Unknown]
  - Depressive symptom [Unknown]
